FAERS Safety Report 19765075 (Version 1)
Quarter: 2021Q3

REPORT INFORMATION
  Report Type: Spontaneous
  Country: US (occurrence: US)
  Receive Date: 20210830
  Receipt Date: 20210830
  Transmission Date: 20211014
  Serious: No
  Sender: FDA-Public Use
  Company Number: US-ENDO PHARMACEUTICALS INC-2021-000239

PATIENT

DRUGS (2)
  1. BREVITAL SODIUM [Suspect]
     Active Substance: METHOHEXITAL SODIUM
     Indication: ANAESTHESIA PROCEDURE
     Dosage: 120 MG, SINGLE
     Route: 065
  2. BREVITAL SODIUM [Suspect]
     Active Substance: METHOHEXITAL SODIUM
     Dosage: 50 MG, SINGLE

REACTIONS (1)
  - Drug ineffective [Unknown]
